FAERS Safety Report 5162785-9 (Version None)
Quarter: 2006Q4

REPORT INFORMATION
  Report Type: 
  Country: None (occurrence: None)
  Receive Date: 20061201
  Receipt Date: 20061128
  Transmission Date: 20070319
  Serious: Yes (Other)
  Sender: FDA-Public Use
  Company Number: US-GLAXOSMITHKLINE-A0628942A

PATIENT
  Age: 54 Year
  Sex: Female

DRUGS (4)
  1. NICORETTE (MINT) [Suspect]
     Indication: SMOKING CESSATION THERAPY
     Dosage: 4MG SEE DOSAGE TEXT
     Route: 002
  2. NICORETTE [Suspect]
     Indication: SMOKING CESSATION THERAPY
     Route: 002
  3. VITAMINS [Concomitant]
  4. NAPROXEN SODIUM [Concomitant]
     Indication: ARTHRALGIA

REACTIONS (4)
  - DEPENDENCE [None]
  - DRUG INEFFECTIVE [None]
  - INTENTIONAL DRUG MISUSE [None]
  - OVERDOSE [None]
